FAERS Safety Report 5929685-5 (Version None)
Quarter: 2008Q4

REPORT INFORMATION
  Report Type: 
  Country: None (occurrence: None)
  Receive Date: 20081024
  Receipt Date: 20081020
  Transmission Date: 20090506
  Serious: Yes (Hospitalization)
  Sender: FDA-Public Use
  Company Number: US-ELI_LILLY_AND_COMPANY-US200809001448

PATIENT
  Sex: Female

DRUGS (3)
  1. HUMATROPE [Suspect]
     Indication: GROWTH HORMONE DEFICIENCY
     Dates: start: 20040101
  2. HYDROCORTISONE [Concomitant]
  3. THYROID TAB [Concomitant]

REACTIONS (9)
  - BONE DISORDER [None]
  - CATARACT [None]
  - DYSPHONIA [None]
  - GASTROINTESTINAL DISORDER [None]
  - KNEE ARTHROPLASTY [None]
  - OROPHARYNGEAL PAIN [None]
  - OSTEOARTHRITIS [None]
  - SPINAL COMPRESSION FRACTURE [None]
  - VISION BLURRED [None]
